FAERS Safety Report 5839509-2 (Version None)
Quarter: 2008Q3

REPORT INFORMATION
  Report Type: 
  Country: None (occurrence: None)
  Receive Date: 20080807
  Receipt Date: 20080722
  Transmission Date: 20090109
  Serious: Yes (Hospitalization)
  Sender: FDA-Public Use
  Company Number: 8035141

PATIENT
  Age: 84 Year
  Sex: Female

DRUGS (4)
  1. KEPPRA [Suspect]
     Indication: EPILEPSY
     Dosage: 500 MG 4/D PO
     Route: 048
     Dates: start: 20080501, end: 20080701
  2. CONCOR /00802602/ [Concomitant]
  3. PANTOZOL /01263202/ [Concomitant]
  4. ASPIRIN [Concomitant]

REACTIONS (1)
  - PRURITUS [None]
